FAERS Safety Report 7748389-X (Version None)
Quarter: 2011Q3

REPORT INFORMATION
  Report Type: 
  Country: None (occurrence: None)
  Receive Date: 20110913
  Receipt Date: 20110901
  Transmission Date: 20111222
  Serious: Yes (Other)
  Sender: FDA-Public Use
  Company Number: US-GENENTECH-323942

PATIENT
  Age: 19 Year
  Sex: Male
  Weight: 160 kg

DRUGS (1)
  1. XOLAIR [Suspect]
     Indication: ASTHMA
     Dosage: 300 MG, Q4W
     Route: 058
     Dates: start: 20110520

REACTIONS (4)
  - MALAISE [None]
  - DIARRHOEA [None]
  - VOMITING [None]
  - URTICARIA [None]
